FAERS Safety Report 5947229-9 (Version None)
Quarter: 2008Q4

REPORT INFORMATION
  Report Type: 
  Country: None (occurrence: None)
  Receive Date: 20081110
  Receipt Date: 20081107
  Transmission Date: 20090506
  Serious: Yes (Hospitalization)
  Sender: FDA-Public Use
  Company Number: US-ROXANE LABORATORIES, INC.-2008-RO-00194RO

PATIENT
  Age: 34 Year
  Sex: Female

DRUGS (3)
  1. PREDNISONE TAB [Suspect]
     Indication: COLITIS
     Dosage: 40MG
     Route: 048
     Dates: start: 20080501
  2. TOPAMAX [Concomitant]
     Indication: EPILEPSY
  3. ASACOL [Concomitant]
     Indication: DYSPEPSIA

REACTIONS (5)
  - DEHYDRATION [None]
  - DIARRHOEA [None]
  - HAEMATOCHEZIA [None]
  - PANCREATITIS [None]
  - PYREXIA [None]
